FAERS Safety Report 6693736-3 (Version None)
Quarter: 2010Q2

REPORT INFORMATION
  Report Type: 
  Country: None (occurrence: None)
  Receive Date: 20100423
  Receipt Date: 20100212
  Transmission Date: 20101027
  Serious: No
  Sender: FDA-Public Use
  Company Number: A0624754A

PATIENT
  Age: 48 Year
  Sex: Female

DRUGS (2)
  1. DEXEDRINE [Suspect]
     Indication: ATTENTION DEFICIT/HYPERACTIVITY DISORDER
     Route: 048
     Dates: end: 20080101
  2. XANAX [Concomitant]

REACTIONS (2)
  - DISTURBANCE IN ATTENTION [None]
  - DRUG INEFFECTIVE [None]
